FAERS Safety Report 4824878-2 (Version None)
Quarter: 2005Q4

REPORT INFORMATION
  Report Type: 
  Country: None (occurrence: None)
  Receive Date: 20051109
  Receipt Date: 20051109
  Transmission Date: 20060501
  Serious: Yes (Other)
  Sender: FDA-Public Use
  Company Number: None

PATIENT
  Age: 53 Year
  Sex: Female

DRUGS (5)
  1. FLUOXETINE [Suspect]
     Indication: DEPRESSION
     Dosage: ONE CAP ORALLY ONCE DAILY  (HAS BEEN ON PROZAC 20MG } 18 MONTHS)
     Route: 048
  2. OMEPRAZOLE [Concomitant]
  3. CATAPRES [Concomitant]
  4. HYDROCHLOROTHIAZIDE [Concomitant]
  5. AMIDRINE [Concomitant]

REACTIONS (6)
  - AGITATION [None]
  - DEPRESSED MOOD [None]
  - DRUG EFFECT DECREASED [None]
  - PHARMACEUTICAL PRODUCT COMPLAINT [None]
  - THERAPEUTIC RESPONSE UNEXPECTED WITH DRUG SUBSTITUTION [None]
  - THINKING ABNORMAL [None]
